FAERS Safety Report 8388127-3 (Version None)
Quarter: 2012Q2

REPORT INFORMATION
  Report Type: 
  Country: None (occurrence: None)
  Receive Date: 20120525
  Receipt Date: 20120521
  Transmission Date: 20120825
  Serious: Yes (Other)
  Sender: FDA-Public Use
  Company Number: US-PFIZER INC-2012110837

PATIENT
  Sex: Female
  Weight: 64.4 kg

DRUGS (2)
  1. XALATAN [Suspect]
     Indication: GLAUCOMA
     Dosage: UNK, 1X/DAY
     Route: 047
  2. TIMOPTIC [Concomitant]
     Dosage: UNK
     Route: 047

REACTIONS (2)
  - BALANCE DISORDER [None]
  - PATELLA FRACTURE [None]
